FAERS Safety Report 18120027 (Version 1)
Quarter: 2020Q3

REPORT INFORMATION
  Report Type: Spontaneous
  Country: US (occurrence: US)
  Receive Date: 20200806
  Receipt Date: 20200806
  Transmission Date: 20201103
  Serious: Yes (Other)
  Sender: FDA-Public Use
  Company Number: US-JNJFOC-20200801388

PATIENT
  Age: 7 Decade
  Sex: Male

DRUGS (1)
  1. BALVERSA [Suspect]
     Active Substance: ERDAFITINIB
     Indication: PRODUCT USED FOR UNKNOWN INDICATION
     Route: 048

REACTIONS (5)
  - Onychomadesis [Unknown]
  - Dry mouth [Unknown]
  - Malignant neoplasm progression [Unknown]
  - Visual impairment [Unknown]
  - Stomatitis [Unknown]
